FAERS Safety Report 4718778-6 (Version None)
Quarter: 2005Q3

REPORT INFORMATION
  Report Type: 
  Country: None (occurrence: None)
  Receive Date: 20050719
  Receipt Date: 20041229
  Transmission Date: 20060218
  Serious: Yes (Hospitalization)
  Sender: FDA-Public Use
  Company Number: 2004242954US

PATIENT
  Age: 70 Year
  Sex: Male
  Weight: 49.9 kg

DRUGS (5)
  1. CELEBREX [Suspect]
     Indication: ARTHRITIS
     Dosage: ( 1 IN 1 D)
     Dates: start: 20030401, end: 20030501
  2. CELEBREX [Suspect]
     Indication: BONE PAIN
     Dosage: ( 1 IN 1 D)
     Dates: start: 20030401, end: 20030501
  3. GLIPIZIDE [Concomitant]
  4. PANCRELIPASE (PANCRELIPASE) [Concomitant]
  5. GLIPIZIDE [Concomitant]

REACTIONS (6)
  - BODY HEIGHT DECREASED [None]
  - FALL [None]
  - HAEMATEMESIS [None]
  - HAEMATOCHEZIA [None]
  - INTESTINAL HAEMORRHAGE [None]
  - SYNCOPE [None]
